FAERS Safety Report 14290478 (Version 3)
Quarter: 2018Q1

REPORT INFORMATION
  Report Type: Report from Study
  Country: US (occurrence: US)
  Receive Date: 20171215
  Receipt Date: 20180314
  Transmission Date: 20180509
  Serious: Yes (Hospitalization)
  Sender: FDA-Public Use
  Company Number: US-JNJFOC-20171219160

PATIENT
  Age: 26 Year
  Sex: Male

DRUGS (14)
  1. PROZAC [Suspect]
     Active Substance: FLUOXETINE HYDROCHLORIDE
     Indication: PSYCHOTIC DISORDER
     Route: 048
     Dates: start: 20170831, end: 20170904
  2. ABILIFY [Suspect]
     Active Substance: ARIPIPRAZOLE
     Indication: PSYCHOTIC DISORDER
     Route: 048
     Dates: start: 20170620, end: 20170831
  3. ATIVAN [Suspect]
     Active Substance: LORAZEPAM
     Indication: PSYCHOTIC DISORDER
     Route: 065
     Dates: start: 20170831, end: 20170904
  4. ABILIFY [Suspect]
     Active Substance: ARIPIPRAZOLE
     Indication: PSYCHOTIC DISORDER
     Route: 048
     Dates: start: 20170831, end: 20170904
  5. BENADRYL [Suspect]
     Active Substance: DIPHENHYDRAMINE HYDROCHLORIDE
     Indication: PSYCHOTIC DISORDER
     Route: 065
     Dates: start: 20170831, end: 20170904
  6. CARBAMAZEPINE. [Suspect]
     Active Substance: CARBAMAZEPINE
     Indication: PSYCHOTIC DISORDER
     Route: 048
     Dates: start: 20170902, end: 20170904
  7. HALODOL [Suspect]
     Active Substance: HALOPERIDOL
     Indication: PSYCHOTIC DISORDER
     Route: 030
     Dates: start: 20170831, end: 20170903
  8. COGENTIN [Suspect]
     Active Substance: BENZTROPINE MESYLATE
     Indication: PSYCHOTIC DISORDER
     Route: 048
     Dates: start: 20170831, end: 20170904
  9. PROLIXIN [Suspect]
     Active Substance: FLUPHENAZINE HYDROCHLORIDE
     Indication: PSYCHOTIC DISORDER
     Route: 048
     Dates: start: 20170903, end: 20170904
  10. ABILIFY [Suspect]
     Active Substance: ARIPIPRAZOLE
     Indication: PSYCHOTIC DISORDER
     Route: 048
     Dates: start: 20170904
  11. CARBAMAZEPINE. [Suspect]
     Active Substance: CARBAMAZEPINE
     Indication: PSYCHOTIC DISORDER
     Route: 048
     Dates: start: 20170831, end: 20170904
  12. HALDOL [Suspect]
     Active Substance: HALOPERIDOL
     Indication: PSYCHOTIC DISORDER
     Route: 048
     Dates: start: 20170831, end: 20170902
  13. COGENTIN [Suspect]
     Active Substance: BENZTROPINE MESYLATE
     Indication: PSYCHOTIC DISORDER
     Route: 048
     Dates: start: 20170902, end: 20170904
  14. HALDOL [Suspect]
     Active Substance: HALOPERIDOL
     Indication: PSYCHOTIC DISORDER
     Route: 048
     Dates: start: 20170831, end: 20170903

REACTIONS (4)
  - Rhabdomyolysis [Recovered/Resolved]
  - Mental status changes [Recovered/Resolved]
  - Fall [Recovered/Resolved]
  - Hypoglycaemia [Recovered/Resolved]

NARRATIVE: CASE EVENT DATE: 20170904
